FAERS Safety Report 4727844-0 (Version None)
Quarter: 2005Q3

REPORT INFORMATION
  Report Type: 
  Country: None (occurrence: None)
  Receive Date: 20050728
  Receipt Date: 20050531
  Transmission Date: 20060218
  Serious: Yes (Hospitalization)
  Sender: FDA-Public Use
  Company Number: DE-MERCK-0505DEU00223

PATIENT
  Age: 70 Year
  Sex: Male
  Weight: 90 kg

DRUGS (10)
  1. VIOXX [Suspect]
     Indication: ARTHRALGIA
     Route: 048
     Dates: start: 20010101, end: 20020101
  2. VIOXX [Suspect]
     Route: 048
     Dates: start: 20020101
  3. VIOXX [Suspect]
     Route: 048
     Dates: start: 20020401
  4. VIOXX [Suspect]
     Route: 048
     Dates: end: 20050101
  5. VIOXX [Suspect]
     Route: 048
     Dates: start: 20020401
  6. VIOXX [Suspect]
     Indication: OSTEOARTHRITIS
     Route: 048
     Dates: start: 20010101, end: 20020101
  7. VIOXX [Suspect]
     Route: 048
     Dates: start: 20020101
  8. VIOXX [Suspect]
     Route: 048
     Dates: start: 20020401
  9. VIOXX [Suspect]
     Route: 048
     Dates: end: 20050101
  10. VIOXX [Suspect]
     Route: 048
     Dates: start: 20020401

REACTIONS (9)
  - ABDOMINAL DISCOMFORT [None]
  - ATRIAL FIBRILLATION [None]
  - CARDIAC FAILURE [None]
  - CEREBROVASCULAR DISORDER [None]
  - DIZZINESS [None]
  - ERECTILE DYSFUNCTION [None]
  - GLUCOSE TOLERANCE IMPAIRED [None]
  - OSTEOARTHRITIS [None]
  - SYNCOPE [None]
